FAERS Safety Report 12891740 (Version 5)
Quarter: 2017Q1

REPORT INFORMATION
  Report Type: Report from Study
  Country: GB (occurrence: GB)
  Receive Date: 20161028
  Receipt Date: 20170224
  Transmission Date: 20170428
  Serious: Yes (Hospitalization, Other)
  Sender: FDA-Public Use
  Company Number: GB-AMGEN-GBRCT2016148510

PATIENT
  Age: 58 Year
  Sex: Male
  Weight: 108 kg

DRUGS (11)
  1. IVABRADINE [Concomitant]
     Active Substance: IVABRADINE
     Dosage: 7.5 MG, UNK
     Route: 048
     Dates: start: 200712
  2. INDAPAMIDE. [Concomitant]
     Active Substance: INDAPAMIDE
     Dosage: 1.5 MG, UNK
     Route: 048
     Dates: start: 2007
  3. LANSOPRAZOLE. [Concomitant]
     Active Substance: LANSOPRAZOLE
     Dosage: 15 MG, UNK
     Route: 048
     Dates: start: 20110104
  4. ASPRIN [Concomitant]
     Active Substance: ASPIRIN
     Dosage: 75 MG, UNK
     Route: 048
     Dates: start: 2007
  5. RAMIPRIL. [Concomitant]
     Active Substance: RAMIPRIL
     Dosage: 10 MG, UNK
     Route: 048
     Dates: start: 2007
  6. AMLODIPINE [Concomitant]
     Active Substance: AMLODIPINE BESYLATE
     Dosage: 10 MG, UNK
     Route: 048
     Dates: start: 2007
  7. ETANERCEPT [Suspect]
     Active Substance: ETANERCEPT
     Indication: PSORIATIC ARTHROPATHY
     Dosage: 50 MG, UNK
     Route: 058
     Dates: start: 20160906
  8. METHOTREXATE. [Suspect]
     Active Substance: METHOTREXATE
     Indication: PSORIATIC ARTHROPATHY
     Dosage: UNK
     Route: 048
     Dates: start: 20160906
  9. ATORVASTATIN [Concomitant]
     Active Substance: ATORVASTATIN
     Dosage: 60 MG, UNK
     Route: 048
     Dates: start: 2007
  10. PREFILLED SYRINGE [Suspect]
     Active Substance: UNSPECIFIED INGREDIENT
     Indication: PSORIATIC ARTHROPATHY
     Dosage: UNK
     Route: 065
     Dates: start: 20160906
  11. FOLIC ACID. [Concomitant]
     Active Substance: FOLIC ACID
     Dosage: 5 MG, UNK
     Dates: start: 20160906

REACTIONS (1)
  - Supraventricular tachyarrhythmia [Recovered/Resolved]

NARRATIVE: CASE EVENT DATE: 20161021
